FAERS Safety Report 24072538 (Version 5)
Quarter: 2024Q3

REPORT INFORMATION
  Report Type: Spontaneous
  Country: US (occurrence: US)
  Receive Date: 20240710
  Receipt Date: 20240813
  Transmission Date: 20241017
  Serious: No
  Sender: JOHNSON AND JOHNSON
  Company Number: US-JNJFOC-20240677848

PATIENT
  Age: 6 Decade
  Sex: Female

DRUGS (6)
  1. SIMPONI ARIA [Suspect]
     Active Substance: GOLIMUMAB
     Indication: Product used for unknown indication
     Route: 041
     Dates: start: 20240605
  2. SIMPONI ARIA [Suspect]
     Active Substance: GOLIMUMAB
     Route: 041
     Dates: start: 20240401
  3. SIMPONI ARIA [Suspect]
     Active Substance: GOLIMUMAB
     Route: 041
     Dates: start: 20231221
  4. SIMPONI ARIA [Suspect]
     Active Substance: GOLIMUMAB
     Route: 041
     Dates: start: 20231025
  5. SIMPONI ARIA [Suspect]
     Active Substance: GOLIMUMAB
     Route: 041
  6. SIMPONI ARIA [Suspect]
     Active Substance: GOLIMUMAB
     Route: 041

REACTIONS (3)
  - Drug ineffective [Unknown]
  - Off label use [Unknown]
  - Drug level decreased [Unknown]
